FAERS Safety Report 23957223 (Version 1)
Quarter: 2024Q2

REPORT INFORMATION
  Report Type: Report from Study
  Country: US (occurrence: US)
  Receive Date: 20240610
  Receipt Date: 20240610
  Transmission Date: 20240716
  Serious: Yes (Hospitalization)
  Sender: FDA-Public Use
  Company Number: US-SEATTLE GENETICS-2024SGN05989

PATIENT
  Age: 55 Year
  Sex: Female

DRUGS (2)
  1. TUKYSA [Suspect]
     Active Substance: TUCATINIB
     Indication: Breast cancer female
     Dosage: 2 TABLETS PO, BID
     Route: 048
  2. XELODA [Suspect]
     Active Substance: CAPECITABINE
     Indication: Breast cancer female
     Dosage: UNK

REACTIONS (3)
  - Full blood count decreased [Unknown]
  - Lethargy [Unknown]
  - Fatigue [Unknown]
